FAERS Safety Report 24910300 (Version 1)
Quarter: 2025Q1

REPORT INFORMATION
  Report Type: Spontaneous
  Country: FI (occurrence: FI)
  Receive Date: 20250131
  Receipt Date: 20250131
  Transmission Date: 20250409
  Serious: Yes (Death, Other)
  Sender: MERCK
  Company Number: None

PATIENT
  Age: 69 Year
  Sex: Female

DRUGS (3)
  1. KEYTRUDA [Suspect]
     Active Substance: PEMBROLIZUMAB
     Indication: Vulval cancer
     Route: 042
     Dates: start: 20241017, end: 20241231
  2. PACLITAXEL [Concomitant]
     Active Substance: PACLITAXEL
  3. CARBOPLATIN [Concomitant]
     Active Substance: CARBOPLATIN

REACTIONS (11)
  - Deep vein thrombosis [Fatal]
  - Intra-abdominal haematoma [Fatal]
  - Iliac vein perforation [Fatal]
  - Pyrexia [Fatal]
  - General physical health deterioration [Fatal]
  - Rash papular [Fatal]
  - Fungal skin infection [Fatal]
  - Blood glucose increased [Fatal]
  - Malaise [Fatal]
  - Hypotension [Fatal]
  - Haemoglobin decreased [Fatal]

NARRATIVE: CASE EVENT DATE: 20241129
